FAERS Safety Report 25129128 (Version 1)
Quarter: 2025Q1

REPORT INFORMATION
  Report Type: Spontaneous
  Country: US (occurrence: US)
  Receive Date: 20250327
  Receipt Date: 20250327
  Transmission Date: 20250408
  Serious: No
  Sender: ANI
  Company Number: US-ANIPHARMA-2024-US-063781

PATIENT
  Age: 67 Year
  Sex: Female

DRUGS (12)
  1. CORTICOTROPIN [Suspect]
     Active Substance: CORTICOTROPIN
     Indication: Systemic lupus erythematosus
     Route: 058
  2. PREDNISONE [Concomitant]
     Active Substance: PREDNISONE
  3. FOLIC ACID [Concomitant]
     Active Substance: FOLIC ACID
  4. JARDIANCE [Concomitant]
     Active Substance: EMPAGLIFLOZIN
  5. METHOTREXATE SODIUM [Concomitant]
     Active Substance: METHOTREXATE SODIUM
  6. DILANTIN [Concomitant]
     Active Substance: PHENYTOIN
  7. PLAQUENIL [Concomitant]
     Active Substance: HYDROXYCHLOROQUINE SULFATE
  8. PERCOCET [Concomitant]
     Active Substance: ACETAMINOPHEN\OXYCODONE HYDROCHLORIDE
  9. FAMOTIDINE [Concomitant]
     Active Substance: FAMOTIDINE
  10. VITAMIN D3 [Concomitant]
     Active Substance: CHOLECALCIFEROL
  11. PROAIR HFA [Concomitant]
     Active Substance: ALBUTEROL SULFATE
  12. FLONASE SENSIMIST ALLERGY RELIEF [Concomitant]
     Active Substance: FLUTICASONE FUROATE

REACTIONS (2)
  - Product dose omission issue [Unknown]
  - Malaise [Unknown]
